FAERS Safety Report 8266981-3 (Version None)
Quarter: 2012Q2

REPORT INFORMATION
  Report Type: 
  Country: None (occurrence: None)
  Receive Date: 20120409
  Receipt Date: 20120330
  Transmission Date: 20120825
  Serious: No
  Sender: FDA-Public Use
  Company Number: US-PFIZER INC-2012087137

PATIENT
  Sex: Female
  Weight: 160 kg

DRUGS (8)
  1. NEURONTIN [Suspect]
     Indication: FIBROMYALGIA
     Dosage: 300 MG, TWO TIMES A DAY
     Route: 048
     Dates: start: 20100101, end: 20100101
  2. PRILOSEC [Concomitant]
  3. TRAMADOL [Concomitant]
     Indication: PAIN
  4. KARIVA [Concomitant]
     Indication: HORMONE LEVEL ABNORMAL
  5. RITALIN [Concomitant]
  6. XANAX [Concomitant]
  7. PROVIGIL [Concomitant]
     Indication: SLEEP DISORDER
  8. VICODIN [Concomitant]
     Indication: PAIN

REACTIONS (3)
  - PAIN [None]
  - DRUG INEFFECTIVE [None]
  - SOMNOLENCE [None]
